FAERS Safety Report 5284268-8 (Version None)
Quarter: 2007Q1

REPORT INFORMATION
  Report Type: 
  Country: None (occurrence: None)
  Receive Date: 20061227
  Receipt Date: 20061127
  Transmission Date: 20070707
  Serious: Yes (Other)
  Sender: FDA-Public Use
  Company Number: A03200607047

PATIENT
  Age: 63 Year
  Sex: Female

DRUGS (3)
  1. AMBIEN [Suspect]
     Indication: INSOMNIA
     Dosage: 12.5 MG HS - ORAL
     Route: 048
     Dates: start: 20060101, end: 20061101
  2. ESTRADIOL [Concomitant]
  3. CYCLOBENZAPRINE HCL [Concomitant]

REACTIONS (3)
  - DEPRESSED MOOD [None]
  - MOOD SWINGS [None]
  - SUICIDAL IDEATION [None]
